FAERS Safety Report 7416394-9 (Version None)
Quarter: 2011Q2

REPORT INFORMATION
  Report Type: 
  Country: None (occurrence: None)
  Receive Date: 20110414
  Receipt Date: 20110404
  Transmission Date: 20111010
  Serious: Yes (Hospitalization)
  Sender: FDA-Public Use
  Company Number: CA-ASTRAZENECA-2011SE18908

PATIENT
  Age: 91 Year
  Sex: Female

DRUGS (5)
  1. ATIVAN [Concomitant]
     Indication: INSOMNIA
     Route: 048
  2. CELEBREX [Concomitant]
     Indication: MUSCULOSKELETAL PAIN
     Route: 048
  3. FELODIPINE [Concomitant]
     Indication: HYPERTENSION
     Dosage: 16, DAILY
     Route: 048
     Dates: start: 20090101
  4. ATACAND [Suspect]
     Indication: HYPERTENSION
     Route: 048
     Dates: start: 20010101
  5. VITALUX [Concomitant]
     Indication: VITAMIN SUPPLEMENTATION

REACTIONS (3)
  - CHEST PAIN [None]
  - PULMONARY HYPERTENSION [None]
  - HEART VALVE INCOMPETENCE [None]
